FAERS Safety Report 9169088 (Version 1)
Quarter: 2013Q1

REPORT INFORMATION
  Report Type: Spontaneous
  Country: BE (occurrence: BE)
  Receive Date: 20130318
  Receipt Date: 20130318
  Transmission Date: 20140127
  Serious: Yes (Hospitalization, Other)
  Sender: FDA-Public Use
  Company Number: BE-ASTRAZENECA-2013SE15963

PATIENT
  Age: 52 Year
  Sex: Male

DRUGS (2)
  1. BRILIQUE [Suspect]
     Indication: MYOCARDIAL INFARCTION
     Route: 048
     Dates: start: 2013
  2. ASAFLOW [Concomitant]

REACTIONS (2)
  - Myocardial infarction [Unknown]
  - Drug dose omission [Unknown]
